FAERS Safety Report 11216583 (Version 2)
Quarter: 2015Q3

REPORT INFORMATION
  Report Type: Spontaneous
  Country: IT (occurrence: IT)
  Receive Date: 20150624
  Receipt Date: 20150708
  Transmission Date: 20151125
  Serious: Yes (Other)
  Sender: FDA-Public Use
  Company Number: IT-AMGEN-ITASP2015059076

PATIENT
  Age: 38 Year
  Sex: Female

DRUGS (1)
  1. NPLATE [Suspect]
     Active Substance: ROMIPLOSTIM
     Indication: IMMUNE THROMBOCYTOPENIC PURPURA
     Dosage: 2 MUG/KG, UNK
     Route: 065

REACTIONS (3)
  - Therapeutic response decreased [Unknown]
  - Neutralising antibodies positive [Unknown]
  - No therapeutic response [Unknown]
